FAERS Safety Report 15760439 (Version 1)
Quarter: 2018Q4

REPORT INFORMATION
  Report Type: Spontaneous
  Country: AU (occurrence: AU)
  Receive Date: 20181226
  Receipt Date: 20181226
  Transmission Date: 20190205
  Serious: Yes (Hospitalization, Other)
  Sender: FDA-Public Use
  Company Number: AU-MYLANLABS-2018M1093800

PATIENT
  Age: 73 Year
  Sex: Male

DRUGS (20)
  1. ASPIRIN                            /00002701/ [Concomitant]
     Active Substance: ASPIRIN
     Route: 065
  2. ISAVUCONAZOLE [Suspect]
     Active Substance: ISAVUCONAZOLE
     Indication: MUCORMYCOSIS
     Route: 065
  3. DOXYCYCLINE. [Concomitant]
     Active Substance: DOXYCYCLINE
     Indication: CELLULITIS ORBITAL
     Dosage: DAY 0 TO 5
     Route: 065
  4. IRBESARTAN. [Concomitant]
     Active Substance: IRBESARTAN
     Route: 065
  5. TAPENTADOL [Concomitant]
     Active Substance: TAPENTADOL
     Route: 065
  6. ROSUVASTATIN. [Concomitant]
     Active Substance: ROSUVASTATIN
     Route: 065
  7. PREDNISONE. [Suspect]
     Active Substance: PREDNISONE
     Indication: LOWER RESPIRATORY TRACT INFECTION
     Dosage: ADMINISTERED AT TAPERING DOSE
     Route: 048
  8. CLINDAMYCIN. [Concomitant]
     Active Substance: CLINDAMYCIN
     Indication: CELLULITIS ORBITAL
     Dosage: DAY 0 TO 5
     Route: 065
  9. AMLODIPINE [Concomitant]
     Active Substance: AMLODIPINE BESYLATE
     Route: 065
  10. OXYCODONE [Concomitant]
     Active Substance: OXYCODONE
     Route: 065
  11. CASPOFUNGIN [Concomitant]
     Active Substance: CASPOFUNGIN
     Indication: MUCORMYCOSIS
     Route: 065
  12. RANITIDINE. [Concomitant]
     Active Substance: RANITIDINE
     Route: 065
  13. METFORMIN [Concomitant]
     Active Substance: METFORMIN HYDROCHLORIDE
     Route: 065
  14. AMPHOTERICIN B. [Suspect]
     Active Substance: AMPHOTERICIN B
     Indication: MUCORMYCOSIS
     Dosage: 10 MILLIGRAM/KILOGRAM
     Route: 065
  15. POSACONAZOLE [Suspect]
     Active Substance: POSACONAZOLE
     Indication: MUCORMYCOSIS
     Route: 042
  16. ONDANSETRON [Concomitant]
     Active Substance: ONDANSETRON
     Route: 065
  17. ESCITALOPRAM [Concomitant]
     Active Substance: ESCITALOPRAM OXALATE
     Route: 065
  18. GLICLAZIDE [Concomitant]
     Active Substance: GLICLAZIDE
     Route: 065
  19. CEFTRIAXONE. [Concomitant]
     Active Substance: CEFTRIAXONE
     Indication: CELLULITIS ORBITAL
     Dosage: DAY 0 TO 5
     Route: 065
  20. METOCLOPRAMIDE. [Concomitant]
     Active Substance: METOCLOPRAMIDE
     Route: 065

REACTIONS (4)
  - Glucose tolerance impaired [Unknown]
  - Mucormycosis [Unknown]
  - Hypomagnesaemia [Recovered/Resolved]
  - Acute kidney injury [Recovering/Resolving]
